FAERS Safety Report 11288778 (Version 1)
Quarter: 2015Q3

REPORT INFORMATION
  Report Type: Spontaneous
  Country: SE (occurrence: SE)
  Receive Date: 20150721
  Receipt Date: 20150721
  Transmission Date: 20151125
  Serious: Yes (Other)
  Sender: FDA-Public Use
  Company Number: SE-JNJFOC-20150707613

PATIENT
  Sex: Female

DRUGS (1)
  1. TOPAMAX [Suspect]
     Active Substance: TOPIRAMATE
     Indication: EPILEPSY
     Dates: end: 2011

REACTIONS (16)
  - Parkinsonism [Unknown]
  - Odynophagia [Unknown]
  - Decreased appetite [Unknown]
  - Visual impairment [Unknown]
  - Dizziness [Unknown]
  - Pain [Unknown]
  - Epilepsy [Unknown]
  - Aggression [Unknown]
  - Respiratory distress [Unknown]
  - Insomnia [Unknown]
  - Weight decreased [Unknown]
  - Palpitations [Unknown]
  - Memory impairment [Unknown]
  - Nightmare [Unknown]
  - Suicidal ideation [Unknown]
  - Balance disorder [Unknown]
